FAERS Safety Report 24253930 (Version 5)
Quarter: 2025Q1

REPORT INFORMATION
  Report Type: Spontaneous
  Country: JP (occurrence: JP)
  Receive Date: 20240827
  Receipt Date: 20250303
  Transmission Date: 20250408
  Serious: Yes (Life-Threatening, Hospitalization, Other)
  Sender: ALEXION PHARMACEUTICALS
  Company Number: 2024A191439

PATIENT
  Weight: 43 kg

DRUGS (37)
  1. TRUQAP [Suspect]
     Active Substance: CAPIVASERTIB
  2. TRUQAP [Suspect]
     Active Substance: CAPIVASERTIB
     Dosage: 4 DAYS IN A ROW, FOLLOWED BY 3 DAYS OFF
  3. TRUQAP [Suspect]
     Active Substance: CAPIVASERTIB
  4. TRUQAP [Suspect]
     Active Substance: CAPIVASERTIB
  5. TRUQAP [Suspect]
     Active Substance: CAPIVASERTIB
  6. FASLODEX [Suspect]
     Active Substance: FULVESTRANT
     Indication: Breast cancer
  7. FASLODEX [Suspect]
     Active Substance: FULVESTRANT
  8. FASLODEX [Suspect]
     Active Substance: FULVESTRANT
     Indication: Breast cancer
     Dosage: 3 MILLIGRAM, Q2W
  9. PREGABALIN [Concomitant]
     Active Substance: PREGABALIN
     Indication: Hypoaesthesia
  10. PREGABALIN [Concomitant]
     Active Substance: PREGABALIN
     Indication: Pain
  11. TRAMADOL [Concomitant]
     Active Substance: TRAMADOL
     Indication: Hypoaesthesia
  12. TRAMADOL [Concomitant]
     Active Substance: TRAMADOL
     Indication: Pain
  13. REBAMIPIDE [Concomitant]
     Active Substance: REBAMIPIDE
  14. METHYLCOBALAMIN [Concomitant]
     Active Substance: METHYLCOBALAMIN
     Indication: Hypoaesthesia
     Dosage: 500 MICROGRAM, TID
  15. METHYLCOBALAMIN [Concomitant]
     Active Substance: METHYLCOBALAMIN
     Indication: Pain
  16. MIYA-BM [Concomitant]
     Active Substance: CLOSTRIDIUM BUTYRICUM SPORES STRAIN M-55
  17. VONOPRAZAN FUMARATE [Concomitant]
     Active Substance: VONOPRAZAN FUMARATE
     Indication: Gastric ulcer haemorrhage
  18. MAGNESIUM OXIDE [Concomitant]
     Active Substance: MAGNESIUM OXIDE
     Indication: Constipation
     Dosage: AS REQUIRED
  19. DENOSUMAB [Concomitant]
     Active Substance: DENOSUMAB
     Indication: Breast cancer
     Route: 065
  20. ABEMACICLIB [Concomitant]
     Active Substance: ABEMACICLIB
     Route: 065
  21. EPIRUBICIN HYDROCHLORIDE [Concomitant]
     Active Substance: EPIRUBICIN HYDROCHLORIDE
     Route: 065
  22. EPIRUBICIN HYDROCHLORIDE [Concomitant]
     Active Substance: EPIRUBICIN HYDROCHLORIDE
     Route: 065
  23. EPIRUBICIN HYDROCHLORIDE [Concomitant]
     Active Substance: EPIRUBICIN HYDROCHLORIDE
     Route: 065
  24. CYCLOPHOSPHAMIDE [Concomitant]
     Active Substance: CYCLOPHOSPHAMIDE
     Route: 065
  25. CYCLOPHOSPHAMIDE [Concomitant]
     Active Substance: CYCLOPHOSPHAMIDE
     Route: 065
  26. CYCLOPHOSPHAMIDE [Concomitant]
     Active Substance: CYCLOPHOSPHAMIDE
     Route: 065
  27. PEGFILGRASTIM [Concomitant]
     Active Substance: PEGFILGRASTIM
     Route: 065
  28. PEGFILGRASTIM [Concomitant]
     Active Substance: PEGFILGRASTIM
     Route: 065
  29. DENOSUMAB [Concomitant]
     Active Substance: DENOSUMAB
     Route: 065
  30. DENOSUMAB [Concomitant]
     Active Substance: DENOSUMAB
     Route: 065
  31. ENHERTU [Concomitant]
     Active Substance: FAM-TRASTUZUMAB DERUXTECAN-NXKI
     Route: 065
  32. VERZENIO [Concomitant]
     Active Substance: ABEMACICLIB
     Indication: Breast cancer
     Route: 065
  33. EXEMESTANE [Concomitant]
     Active Substance: EXEMESTANE
     Indication: Breast cancer
     Route: 065
  34. AFINITOR [Concomitant]
     Active Substance: EVEROLIMUS
     Indication: Breast cancer
     Route: 065
  35. CYCLOPHOSPHAMIDE [Concomitant]
     Active Substance: CYCLOPHOSPHAMIDE
     Route: 065
  36. CYCLOPHOSPHAMIDE [Concomitant]
     Active Substance: CYCLOPHOSPHAMIDE
     Route: 065
  37. CYCLOPHOSPHAMIDE [Concomitant]
     Active Substance: CYCLOPHOSPHAMIDE
     Route: 065

REACTIONS (5)
  - Hyperglycaemic hyperosmolar nonketotic syndrome [Recovering/Resolving]
  - Diabetic ketoacidosis [Recovering/Resolving]
  - Rash [Recovered/Resolved]
  - Pyrexia [Unknown]
  - Hyperglycaemia [Recovering/Resolving]
